FAERS Safety Report 7677813-6 (Version None)
Quarter: 2011Q3

REPORT INFORMATION
  Report Type: 
  Country: None (occurrence: None)
  Receive Date: 20110811
  Receipt Date: 20110801
  Transmission Date: 20111222
  Serious: Yes (Hospitalization)
  Sender: FDA-Public Use
  Company Number: US-JNJFOC-20100201800

PATIENT
  Sex: Male
  Weight: 27.4 kg

DRUGS (9)
  1. REMICADE [Suspect]
     Dosage: 5 INFUSIONS RECEIVED
     Route: 042
     Dates: start: 20100125
  2. METHOTREXATE [Concomitant]
  3. SARGRAMOSTIM [Concomitant]
  4. REMICADE [Suspect]
     Route: 042
     Dates: start: 20091113
  5. METRONIDAZOLE [Concomitant]
  6. MESALAMINE [Concomitant]
  7. CIPROFLOXACIN [Concomitant]
  8. REMICADE [Suspect]
     Indication: CROHN'S DISEASE
     Dosage: 3 INFUSIONS RECEIVED
     Route: 042
     Dates: start: 20091214
  9. METRONIDAZOLE [Concomitant]

REACTIONS (7)
  - METABOLIC ALKALOSIS [None]
  - MALNUTRITION [None]
  - VOMITING [None]
  - DIARRHOEA [None]
  - ANAEMIA [None]
  - RECTAL HAEMORRHAGE [None]
  - CROHN'S DISEASE [None]
